FAERS Safety Report 9660965 (Version 7)
Quarter: 2014Q2

REPORT INFORMATION
  Report Type: Spontaneous
  Country: US (occurrence: US)
  Receive Date: 20131031
  Receipt Date: 20140416
  Transmission Date: 20141212
  Serious: Yes (Other)
  Sender: FDA-Public Use
  Company Number: US-009507513-1310USA013845

PATIENT
  Age: 58 Year
  Sex: Male

DRUGS (6)
  1. PEGINTRON [Suspect]
     Indication: CHRONIC HEPATITIS C
     Dosage: 0.5 CC, QW, ORANGE REDIPEN
     Route: 058
     Dates: start: 20131025, end: 20131212
  2. PEGINTRON [Suspect]
     Dosage: 0.5 CC, QW, PINK REDIPEN
     Route: 058
     Dates: start: 20131213, end: 201401
  3. PEGINTRON [Suspect]
     Dosage: 0.5 CC, QW, REDIPEN
     Route: 058
     Dates: start: 201401
  4. REBETOL [Suspect]
     Indication: CHRONIC HEPATITIS C
     Dosage: 5 PILLS A DAY
     Route: 048
     Dates: start: 20131025, end: 2013
  5. REBETOL [Suspect]
     Dosage: 3 PILLS A DAY, BID
     Route: 048
     Dates: start: 2013
  6. VICTRELIS [Suspect]
     Indication: CHRONIC HEPATITIS C
     Dosage: 12 DF DAILY, Q8H
     Route: 048
     Dates: start: 20131118

REACTIONS (10)
  - Blood potassium decreased [Recovered/Resolved]
  - Influenza [Recovering/Resolving]
  - Depression [Recovered/Resolved]
  - Thirst [Recovering/Resolving]
  - Injection site pruritus [Recovering/Resolving]
  - Injection site rash [Recovering/Resolving]
  - White blood cell count decreased [Recovering/Resolving]
  - Blood potassium decreased [Recovering/Resolving]
  - Dry mouth [Recovering/Resolving]
  - Haematuria [Recovered/Resolved]
